FAERS Safety Report 13643891 (Version 6)
Quarter: 2018Q3

REPORT INFORMATION
  Report Type: Report from Study
  Country: MX (occurrence: MX)
  Receive Date: 20170612
  Receipt Date: 20180723
  Transmission Date: 20181010
  Serious: Yes (Other)
  Sender: FDA-Public Use
  Company Number: MX-BAYER-2016-195769

PATIENT
  Age: 75 Year
  Sex: Male
  Weight: 75 kg

DRUGS (5)
  1. OMEPRAZOLE. [Concomitant]
     Active Substance: OMEPRAZOLE
  2. OMEGA 3 [Concomitant]
     Active Substance: OMEGA-3 FATTY ACIDS
  3. NEXAVAR [Suspect]
     Active Substance: SORAFENIB
     Indication: RENAL CELL CARCINOMA
     Dosage: 600 MG, QD
     Dates: start: 20130101
  4. TELMISARTAN. [Concomitant]
     Active Substance: TELMISARTAN
     Dosage: 40 MG, UNK
  5. SELENIUM [Concomitant]
     Active Substance: SELENIUM

REACTIONS (26)
  - Bronchial disorder [None]
  - Pneumonia [None]
  - Dysphonia [Not Recovered/Not Resolved]
  - Sensitivity to weather change [None]
  - Oropharyngeal discomfort [Not Recovered/Not Resolved]
  - Gastrooesophageal reflux disease [Not Recovered/Not Resolved]
  - Pain [Not Recovered/Not Resolved]
  - Oropharyngeal pain [None]
  - Anaemia [Recovered/Resolved]
  - Stress [Recovered/Resolved]
  - Fall [Recovered/Resolved]
  - Contusion [Not Recovered/Not Resolved]
  - Influenza [Not Recovered/Not Resolved]
  - Dysphonia [None]
  - Weight increased [None]
  - Fatigue [Not Recovered/Not Resolved]
  - Dysphonia [Not Recovered/Not Resolved]
  - Influenza [Not Recovered/Not Resolved]
  - Thyroid disorder [Unknown]
  - Pneumonia [Recovered/Resolved with Sequelae]
  - Skin fragility [Not Recovered/Not Resolved]
  - Cough [Not Recovered/Not Resolved]
  - Limb injury [Not Recovered/Not Resolved]
  - Pain of skin [Not Recovered/Not Resolved]
  - Cough [None]
  - Fatigue [None]

NARRATIVE: CASE EVENT DATE: 20130101
